FAERS Safety Report 8867743 (Version 1)
Quarter: 2012Q4

REPORT INFORMATION
  Report Type: 
  Country: US (occurrence: US)
  Receive Date: 20121025
  Receipt Date: 20121025
  Transmission Date: 20130627
  Serious: No
  Sender: FDA-Public Use
  Company Number: US-AMGEN-USASP2012018087

PATIENT
  Sex: Female

DRUGS (6)
  1. ENBREL [Suspect]
     Indication: PRODUCT USED FOR UNKNOWN INDICATION
     Dosage: 50 mg, qwk
     Route: 058
  2. PERCOCET                           /00446701/ [Concomitant]
     Dosage: UNK
  3. OMEPRAZOLE [Concomitant]
     Dosage: 20 mg, UNK
  4. ARAVA [Concomitant]
     Dosage: 10 mg, UNK
  5. TYLENOL 8 HOUR [Concomitant]
     Dosage: 650 mg, UNK
  6. NEURONTIN [Concomitant]
     Dosage: 100 mg, UNK

REACTIONS (2)
  - Dizziness [Unknown]
  - Dyspnoea [Unknown]
